FAERS Safety Report 11854264 (Version 2)
Quarter: 2016Q1

REPORT INFORMATION
  Report Type: Spontaneous
  Country: US (occurrence: US)
  Receive Date: 20151220
  Receipt Date: 20160118
  Transmission Date: 20160526
  Serious: No
  Sender: FDA-Public Use
  Company Number: US-ZYDUS-006860

PATIENT
  Age: 62 Year
  Sex: Male

DRUGS (2)
  1. SOFOSBUVIR [Concomitant]
     Active Substance: SOFOSBUVIR
     Indication: PRODUCT USED FOR UNKNOWN INDICATION
  2. RIBAVIRIN. [Suspect]
     Active Substance: RIBAVIRIN
     Indication: HEPATITIS C
     Dosage: 600MG QAM, 400MG QPM, PO
     Route: 048

REACTIONS (3)
  - Laboratory test abnormal [Unknown]
  - Fatigue [Unknown]
  - Anxiety [Unknown]
